FAERS Safety Report 17944615 (Version 1)
Quarter: 2020Q2

REPORT INFORMATION
  Report Type: Spontaneous
  Country: US (occurrence: US)
  Receive Date: 20200625
  Receipt Date: 20200625
  Transmission Date: 20200714
  Serious: Yes (Death, Hospitalization, Other)
  Sender: FDA-Public Use
  Company Number: US-ASTELLAS-2020US020235

PATIENT
  Age: 65 Year
  Sex: Male

DRUGS (1)
  1. PADCEV [Suspect]
     Active Substance: ENFORTUMAB VEDOTIN-EJFV
     Indication: PRODUCT USED FOR UNKNOWN INDICATION
     Dosage: 1.25 MG/KG, CYCLIC RECEIVED 2 DOSES (C1D1 AND C1D8)
     Route: 065
     Dates: start: 202004

REACTIONS (10)
  - Hydronephrosis [Unknown]
  - Acute kidney injury [Unknown]
  - Dermatitis bullous [Unknown]
  - Leukopenia [Unknown]
  - Mucosal inflammation [Unknown]
  - Delirium [Unknown]
  - Hyperaesthesia [Unknown]
  - Ureteric obstruction [Unknown]
  - Skin toxicity [Fatal]
  - Neutropenia [Unknown]
